FAERS Safety Report 24431848 (Version 2)
Quarter: 2024Q4

REPORT INFORMATION
  Report Type: Spontaneous
  Country: JP (occurrence: JP)
  Receive Date: 20241014
  Receipt Date: 20241014
  Transmission Date: 20250114
  Serious: Yes (Other)
  Sender: MERCK
  Company Number: JP-MSD-M2024-40501

PATIENT
  Age: 51 Year
  Sex: Male

DRUGS (2)
  1. KEYTRUDA [Suspect]
     Active Substance: PEMBROLIZUMAB
     Indication: Renal cell carcinoma stage IV
     Dosage: 400 MILLIGRAM, EVERY 6 WEEKS
     Route: 041
     Dates: start: 20240909
  2. LENVATINIB MESYLATE [Suspect]
     Active Substance: LENVATINIB MESYLATE
     Indication: Renal cell carcinoma stage IV
     Dosage: 14 MILLIGRAM, QD
     Route: 048
     Dates: start: 20240909, end: 202410

REACTIONS (7)
  - Renal impairment [Unknown]
  - Thyroid disorder [Unknown]
  - Fatigue [Recovering/Resolving]
  - Malaise [Unknown]
  - Decreased appetite [Unknown]
  - Hepatic function abnormal [Unknown]
  - Proteinuria [Unknown]

NARRATIVE: CASE EVENT DATE: 20240930
